FAERS Safety Report 13675882 (Version 1)
Quarter: 2017Q2

REPORT INFORMATION
  Report Type: Spontaneous
  Country: US (occurrence: US)
  Receive Date: 20170620
  Receipt Date: 20170620
  Transmission Date: 20170830
  Serious: Yes (Other)
  Sender: FDA-Public Use
  Company Number: None

PATIENT
  Age: 33 Year
  Sex: Female
  Weight: 71.1 kg

DRUGS (2)
  1. LEVAQUIN [Suspect]
     Active Substance: LEVOFLOXACIN
     Indication: BRONCHITIS
     Route: 048
     Dates: start: 20160711, end: 20160712
  2. ADVIL [Concomitant]
     Active Substance: IBUPROFEN

REACTIONS (4)
  - Dysphemia [None]
  - Therapy cessation [None]
  - Hallucination [None]
  - Anxiety [None]

NARRATIVE: CASE EVENT DATE: 20160711
